FAERS Safety Report 4619226-7 (Version None)
Quarter: 2005Q1

REPORT INFORMATION
  Report Type: 
  Country: None (occurrence: None)
  Receive Date: 20050318
  Receipt Date: 20050318
  Transmission Date: 20050727
  Serious: Yes (Hospitalization)
  Sender: FDA-Public Use
  Company Number: None

PATIENT
  Sex: Female
  Weight: 72.5755 kg

DRUGS (3)
  1. DURAGESIC-100 [Suspect]
     Indication: PAIN MANAGEMENT
     Dosage: TOPICAL [PRIOR TO ADMISSION]
     Route: 061
  2. COUMADIN [Concomitant]
  3. FORTEO [Concomitant]

REACTIONS (3)
  - COMA [None]
  - INADEQUATE DIET [None]
  - LETHARGY [None]
